FAERS Safety Report 4888008-3 (Version None)
Quarter: 2006Q1

REPORT INFORMATION
  Report Type: 
  Country: None (occurrence: None)
  Receive Date: 20060123
  Receipt Date: 20051005
  Transmission Date: 20060701
  Serious: Yes (Disabling)
  Sender: FDA-Public Use
  Company Number: US-MERCK-0510USA03453

PATIENT
  Age: 41 Year
  Sex: Male
  Weight: 102 kg

DRUGS (7)
  1. VIOXX [Suspect]
     Indication: ARTHRITIS
     Route: 048
     Dates: start: 20010302, end: 20020101
  2. VIOXX [Suspect]
     Indication: ARTHRALGIA
     Route: 048
     Dates: start: 20010302, end: 20020101
  3. HYCODAN [Concomitant]
     Route: 065
  4. LIPITOR [Concomitant]
     Route: 065
  5. NORVASC [Concomitant]
     Route: 065
  6. ZESTRIL [Concomitant]
     Route: 065
  7. ZESTORETIC [Concomitant]
     Route: 065

REACTIONS (2)
  - CEREBROVASCULAR ACCIDENT [None]
  - RENAL FAILURE CHRONIC [None]
